FAERS Safety Report 4887076-2 (Version None)
Quarter: 2006Q1

REPORT INFORMATION
  Report Type: 
  Country: None (occurrence: None)
  Receive Date: 20060120
  Receipt Date: 20050421
  Transmission Date: 20060701
  Serious: Yes (Other)
  Sender: FDA-Public Use
  Company Number: US-MERCK-0504USA04254

PATIENT
  Age: 49 Year
  Sex: Female
  Weight: 45 kg

DRUGS (4)
  1. VIOXX [Suspect]
     Indication: OSTEOARTHRITIS
     Route: 048
     Dates: start: 20010614, end: 20010913
  2. CLIMARA [Concomitant]
     Indication: OSTEOPOROSIS
     Route: 065
  3. DILAUDID [Concomitant]
     Indication: PAIN
     Route: 065
  4. MIACALCIN [Concomitant]
     Route: 065

REACTIONS (9)
  - CARDIAC FAILURE CONGESTIVE [None]
  - CONCUSSION [None]
  - HIP FRACTURE [None]
  - INJURY [None]
  - LIMB INJURY [None]
  - MYOCARDIAL INFARCTION [None]
  - OESOPHAGEAL DISORDER [None]
  - PAIN [None]
  - ROAD TRAFFIC ACCIDENT [None]
